FAERS Safety Report 4662018-3 (Version None)
Quarter: 2005Q2

REPORT INFORMATION
  Report Type: 
  Country: None (occurrence: None)
  Receive Date: 20050512
  Receipt Date: 20050429
  Transmission Date: 20051028
  Serious: Yes (Other)
  Sender: FDA-Public Use
  Company Number: 2005055998

PATIENT
  Age: 50 Year
  Sex: Male
  Weight: 108.8633 kg

DRUGS (7)
  1. ZYVOX [Suspect]
     Indication: STAPHYLOCOCCAL INFECTION
     Dosage: 1200 MG (600 MG, 2 IN 1 D) ORAL
     Route: 048
     Dates: start: 20041010
  2. LISINOPRIL [Concomitant]
  3. PRAVASTATIN SODIUM [Concomitant]
  4. RANITIDINE [Concomitant]
  5. LEVOTHYROXINE SODIUM [Concomitant]
  6. INSULIN GLARGINE [Concomitant]
  7. INSULIN [Concomitant]

REACTIONS (7)
  - ABDOMINAL DISCOMFORT [None]
  - DIABETIC NEUROPATHY [None]
  - DISEASE RECURRENCE [None]
  - FACIAL PALSY [None]
  - HERPES SIMPLEX [None]
  - ORAL MUCOSAL BLISTERING [None]
  - STAPHYLOCOCCAL INFECTION [None]
